FAERS Safety Report 6548537-3 (Version None)
Quarter: 2010Q1

REPORT INFORMATION
  Report Type: 
  Country: None (occurrence: None)
  Receive Date: 20100124
  Receipt Date: 20090814
  Transmission Date: 20100710
  Serious: No
  Sender: FDA-Public Use
  Company Number: US-ALLERGAN-0911316US

PATIENT
  Sex: Female

DRUGS (3)
  1. RESTASIS [Suspect]
     Indication: DRY EYE
     Dosage: UNK
     Dates: start: 20090812
  2. MICARDIS [Concomitant]
     Dosage: 10 MG, QD
  3. ZOCOR [Concomitant]
     Dosage: 10 MG, QD

REACTIONS (1)
  - EYE PAIN [None]
